FAERS Safety Report 16594387 (Version 1)
Quarter: 2019Q3

REPORT INFORMATION
  Report Type: Other
  Country: US (occurrence: US)
  Receive Date: 20190718
  Receipt Date: 20190718
  Transmission Date: 20191004
  Serious: No
  Sender: FDA-Public Use
  Company Number: US-SWEDISH ORPHAN BIOVITRUM-2019US0101

PATIENT
  Age: 36 Year
  Sex: Female

DRUGS (6)
  1. FOLIC ACID. [Concomitant]
     Active Substance: FOLIC ACID
  2. PREDNISONE. [Concomitant]
     Active Substance: PREDNISONE
  3. KINERET [Suspect]
     Active Substance: ANAKINRA
     Route: 058
  4. METHOTREXATE. [Concomitant]
     Active Substance: METHOTREXATE
  5. PREVACID [Concomitant]
     Active Substance: LANSOPRAZOLE
  6. MAGNESIUM [Concomitant]
     Active Substance: MAGNESIUM

REACTIONS (5)
  - Injection site bruising [Unknown]
  - Injection site urticaria [Unknown]
  - Injection site pain [Unknown]
  - Injection site swelling [Unknown]
  - Injection site pruritus [Unknown]

NARRATIVE: CASE EVENT DATE: 20190105
